FAERS Safety Report 19958518 (Version 2)
Quarter: 2021Q4

REPORT INFORMATION
  Report Type: Spontaneous
  Country: US (occurrence: US)
  Receive Date: 20211015
  Receipt Date: 20211102
  Transmission Date: 20220303
  Serious: Yes (Death, Hospitalization, Other)
  Sender: FDA-Public Use
  Company Number: US-PFIZER INC-202101306328

PATIENT
  Age: 19 Year
  Sex: Female
  Weight: 46.984 kg

DRUGS (15)
  1. LINEZOLID [Suspect]
     Active Substance: LINEZOLID
     Indication: Pulmonary tuberculosis
     Dosage: UNK
     Route: 048
     Dates: start: 20210318
  2. LINEZOLID [Suspect]
     Active Substance: LINEZOLID
     Indication: Disseminated tuberculosis
     Dosage: 300 MG
     Route: 048
     Dates: start: 20210318, end: 20210422
  3. DELAMANID [Suspect]
     Active Substance: DELAMANID
     Indication: Pulmonary tuberculosis
     Dosage: 100 MG, 2X/DAY
     Route: 048
     Dates: start: 20210528
  4. DELAMANID [Suspect]
     Active Substance: DELAMANID
     Indication: Disseminated tuberculosis
  5. BEDAQUILINE [Suspect]
     Active Substance: BEDAQUILINE
     Indication: Pulmonary tuberculosis
     Dosage: 200 MG, (TIW, ORAL)
     Route: 048
     Dates: start: 20210318
  6. BEDAQUILINE [Suspect]
     Active Substance: BEDAQUILINE
     Indication: Disseminated tuberculosis
     Dosage: 400 MG
     Route: 048
     Dates: end: 20210422
  7. CLOFAZIMINE [Suspect]
     Active Substance: CLOFAZIMINE
     Indication: Pulmonary tuberculosis
     Dosage: 100 MG
     Route: 048
     Dates: start: 20210318, end: 20210422
  8. CLOFAZIMINE [Suspect]
     Active Substance: CLOFAZIMINE
     Indication: Disseminated tuberculosis
  9. CYCLOSERINE [Suspect]
     Active Substance: CYCLOSERINE
     Indication: Pulmonary tuberculosis
     Dosage: 750 MG
     Route: 048
     Dates: start: 20210318, end: 20210422
  10. CYCLOSERINE [Suspect]
     Active Substance: CYCLOSERINE
     Indication: Disseminated tuberculosis
  11. IMIPENEM [Suspect]
     Active Substance: IMIPENEM
     Indication: Pulmonary tuberculosis
     Dosage: 2000 MG
     Route: 042
     Dates: start: 20210318
  12. IMIPENEM [Suspect]
     Active Substance: IMIPENEM
     Indication: Disseminated tuberculosis
  13. AMOXICILLIN\CLAVULANIC ACID [Suspect]
     Active Substance: AMOXICILLIN\CLAVULANIC ACID
     Indication: Tuberculosis
     Dosage: 1250 MG
     Route: 048
     Dates: start: 20210318, end: 20210422
  14. AMOXICILLIN\CLAVULANIC ACID [Suspect]
     Active Substance: AMOXICILLIN\CLAVULANIC ACID
     Indication: Disseminated tuberculosis
  15. IMIPENEM AND CILASTATIN [Concomitant]
     Active Substance: CILASTATIN SODIUM\IMIPENEM
     Indication: Disseminated tuberculosis
     Dosage: UNK
     Dates: start: 20210318, end: 20210422

REACTIONS (26)
  - Embolism [Fatal]
  - Deep vein thrombosis [Fatal]
  - Hydronephrosis [Fatal]
  - Hepatitis B antigen positive [Fatal]
  - Loss of consciousness [Fatal]
  - Anaemia [Not Recovered/Not Resolved]
  - Ureteric stenosis [Not Recovered/Not Resolved]
  - Tuberculosis ureter [Not Recovered/Not Resolved]
  - Renal tuberculosis [Not Recovered/Not Resolved]
  - Lymph node tuberculosis [Not Recovered/Not Resolved]
  - Respiratory failure [Not Recovered/Not Resolved]
  - Cholecystitis chronic [Unknown]
  - Ascites [Unknown]
  - Ureteritis [Unknown]
  - Hypokalaemia [Unknown]
  - Papillitis [Not Recovered/Not Resolved]
  - Dizziness [Not Recovered/Not Resolved]
  - Headache [Not Recovered/Not Resolved]
  - Asthenia [Not Recovered/Not Resolved]
  - Tachycardia [Not Recovered/Not Resolved]
  - Dyspnoea [Unknown]
  - Peripheral swelling [Unknown]
  - Lymphadenopathy [Unknown]
  - Blood pressure decreased [Unknown]
  - Hepatosplenomegaly [Unknown]
  - Off label use [Unknown]

NARRATIVE: CASE EVENT DATE: 20210318
